FAERS Safety Report 5507496-2 (Version None)
Quarter: 2007Q4

REPORT INFORMATION
  Report Type: 
  Country: None (occurrence: None)
  Receive Date: 20071106
  Receipt Date: 20071030
  Transmission Date: 20080405
  Serious: Yes (Hospitalization)
  Sender: FDA-Public Use
  Company Number: FR-AVENTIS-200713441FR

PATIENT
  Age: 49 Year
  Sex: Male

DRUGS (5)
  1. AMARYL [Suspect]
     Route: 048
     Dates: start: 20040101, end: 20070505
  2. PREVISCAN                          /00789001/ [Suspect]
     Route: 048
     Dates: start: 20040101
  3. ELISOR [Suspect]
     Route: 048
     Dates: start: 20040101, end: 20070505
  4. ZESTORETIC [Suspect]
     Route: 048
     Dates: start: 20040101, end: 20070505
  5. LEVOTHYROX [Suspect]
     Route: 048
     Dates: start: 20040101, end: 20070505

REACTIONS (2)
  - ECZEMA [None]
  - EOSINOPHILIA [None]
